FAERS Safety Report 5814013-6 (Version None)
Quarter: 2008Q3

REPORT INFORMATION
  Report Type: 
  Country: None (occurrence: None)
  Receive Date: 20080717
  Receipt Date: 20080709
  Transmission Date: 20090109
  Serious: Yes (Other)
  Sender: FDA-Public Use
  Company Number: DE-PFIZER INC-2007033121

PATIENT
  Age: 42 Year
  Sex: Male

DRUGS (1)
  1. ZITHROMAX [Suspect]
     Indication: INFLUENZA
     Route: 048
     Dates: start: 20030101, end: 20040101

REACTIONS (22)
  - ABDOMINAL DISCOMFORT [None]
  - ABDOMINAL DISTENSION [None]
  - ABDOMINAL PAIN [None]
  - ALANINE AMINOTRANSFERASE INCREASED [None]
  - ASTHENIA [None]
  - BLOOD URINE PRESENT [None]
  - CHANGE OF BOWEL HABIT [None]
  - COUGH [None]
  - DISTURBANCE IN ATTENTION [None]
  - DIVERTICULUM [None]
  - DIZZINESS [None]
  - DRY MOUTH [None]
  - ERYTHEMA [None]
  - FATIGUE [None]
  - HEADACHE [None]
  - OEDEMA PERIPHERAL [None]
  - PERFORMANCE STATUS DECREASED [None]
  - PHOTOPHOBIA [None]
  - SKIN IRRITATION [None]
  - STOMACH DISCOMFORT [None]
  - VISUAL IMPAIRMENT [None]
  - WEIGHT INCREASED [None]
